FAERS Safety Report 14574203 (Version 3)
Quarter: 2018Q2

REPORT INFORMATION
  Report Type: Report from Study
  Country: US (occurrence: US)
  Receive Date: 20180226
  Receipt Date: 20180416
  Transmission Date: 20180711
  Serious: Yes (Hospitalization, Other)
  Sender: FDA-Public Use
  Company Number: US-ACTELION-A-US2018-166236

PATIENT
  Age: 14 Week
  Sex: Male

DRUGS (26)
  1. FERROUS SULFATE. [Concomitant]
     Active Substance: FERROUS SULFATE
  2. ENALAPRIL [Concomitant]
     Active Substance: ENALAPRIL
  3. METHYLPREDNISOLONE. [Concomitant]
     Active Substance: METHYLPREDNISOLONE
     Dosage: 0.5 MG/KG, Q6HRS
     Route: 042
  4. SODIUM CHLORIDE. [Concomitant]
     Active Substance: SODIUM CHLORIDE
     Dosage: 4 ML, Q4HRS
  5. MULTIVITAMINS PLUS IRON [Concomitant]
     Active Substance: IRON\VITAMINS
  6. PRECEDEX [Concomitant]
     Active Substance: DEXMEDETOMIDINE HYDROCHLORIDE
     Dosage: 0.7 MCG, UNK
  7. FENTANYL. [Concomitant]
     Active Substance: FENTANYL
     Dosage: 1.4 MCG, UNK
  8. MILRINONE [Concomitant]
     Active Substance: MILRINONE
  9. SIMETHICONE (DIMETHICONE) [Concomitant]
     Active Substance: DIMETHICONE
  10. SPIRONOLACTONE. [Concomitant]
     Active Substance: SPIRONOLACTONE
     Dosage: 1 NG/KG, BID
     Route: 049
  11. FAMOTIDINE. [Concomitant]
     Active Substance: FAMOTIDINE
     Dosage: 0.5 MG/KG, BID
     Route: 048
  12. SILDENAFIL. [Concomitant]
     Active Substance: SILDENAFIL
     Dosage: 0.375 MG/KG, Q6HRS
     Route: 049
  13. RANITIDINE. [Concomitant]
     Active Substance: RANITIDINE
  14. GLYCERINE [Concomitant]
     Active Substance: GLYCERIN
     Route: 054
  15. HEPARIN [Concomitant]
     Active Substance: HEPARIN SODIUM
  16. OMEPRAZOLE. [Concomitant]
     Active Substance: OMEPRAZOLE
  17. CLONIDINE. [Concomitant]
     Active Substance: CLONIDINE
  18. PIPERACILLIN AND TAZOBACTAM [Concomitant]
     Active Substance: PIPERACILLIN SODIUM\TAZOBACTAM SODIUM
     Dosage: 80 MG/KG, Q6HRS
     Route: 042
  19. TRACLEER [Suspect]
     Active Substance: BOSENTAN
     Indication: PULMONARY HYPERTENSION
     Dosage: 15.625 MG, BID
     Route: 049
     Dates: start: 20180102, end: 20180209
  20. DIAMOX SEQUELS [Concomitant]
     Active Substance: ACETAZOLAMIDE
     Dosage: 5 MG/KG, BID
     Route: 042
  21. MIDAZOLAM [Concomitant]
     Active Substance: MIDAZOLAM HYDROCHLORIDE
     Dosage: UNK
     Dates: end: 20180213
  22. TAMIFLU [Concomitant]
     Active Substance: OSELTAMIVIR PHOSPHATE
     Dosage: 3 MG/KG, BID
     Route: 048
  23. MORPHINE [Concomitant]
     Active Substance: MORPHINE
  24. FUROSEMIDE. [Concomitant]
     Active Substance: FUROSEMIDE
     Dosage: 1 NG/KG, TID
     Route: 049
  25. ALBUTEROL. [Concomitant]
     Active Substance: ALBUTEROL
  26. VITAMIN D3 [Concomitant]
     Active Substance: CHOLECALCIFEROL
     Dosage: 400 U, QAM
     Route: 049

REACTIONS (24)
  - Hepatic congestion [Unknown]
  - Upper respiratory tract infection [Recovering/Resolving]
  - Hypoxia [Unknown]
  - Drug administration error [Unknown]
  - Right atrial pressure increased [Unknown]
  - International normalised ratio increased [Recovered/Resolved]
  - Ammonia increased [Recovered/Resolved]
  - Respiratory failure [Not Recovered/Not Resolved]
  - Dyspnoea [Not Recovered/Not Resolved]
  - Bronchospasm [Unknown]
  - Right ventricular failure [Unknown]
  - Livedo reticularis [Unknown]
  - Haemophilus infection [Unknown]
  - Product use issue [Unknown]
  - Wheezing [Unknown]
  - Pseudomonas test positive [Unknown]
  - Acute hepatic failure [Recovered/Resolved]
  - Aspartate aminotransferase increased [Recovered/Resolved]
  - Alanine aminotransferase increased [Recovered/Resolved]
  - Bronchiolitis [Not Recovered/Not Resolved]
  - Viral infection [Recovering/Resolving]
  - Tricuspid valve incompetence [Unknown]
  - Hypercapnia [Unknown]
  - Toxicity to various agents [Unknown]

NARRATIVE: CASE EVENT DATE: 20180202
